FAERS Safety Report 9909476 (Version 1)
Quarter: 2014Q1

REPORT INFORMATION
  Report Type: Spontaneous
  Country: US (occurrence: None)
  Receive Date: 20140214
  Receipt Date: 20140214
  Transmission Date: 20141002
  Serious: No
  Sender: FDA-Public Use
  Company Number: None

PATIENT
  Age: 36 Year
  Sex: Male

DRUGS (5)
  1. CARBAMAZEPINE [Suspect]
     Route: 048
  2. AMBIEN [Concomitant]
  3. HALDOL [Concomitant]
  4. BENZTROPIN [Concomitant]
  5. VALPROIC ACID [Concomitant]

REACTIONS (1)
  - Blood sodium decreased [None]
